FAERS Safety Report 21853775 (Version 2)
Quarter: 2024Q1

REPORT INFORMATION
  Report Type: Spontaneous
  Country: AR (occurrence: AR)
  Receive Date: 20230112
  Receipt Date: 20240112
  Transmission Date: 20240409
  Serious: Yes (Other)
  Sender: FDA-Public Use
  Company Number: AR-PFIZER INC-PV202300005292

PATIENT
  Age: 58 Year
  Sex: Male

DRUGS (1)
  1. LORLATINIB [Suspect]
     Active Substance: LORLATINIB
     Indication: Lung neoplasm malignant
     Dosage: 50 MG, 1X/DAY
     Dates: start: 20220930

REACTIONS (2)
  - Hallucination, auditory [Not Recovered/Not Resolved]
  - Blood cholesterol decreased [Recovered/Resolved]

NARRATIVE: CASE EVENT DATE: 20230109
